FAERS Safety Report 14778890 (Version 1)
Quarter: 2018Q2

REPORT INFORMATION
  Report Type: Spontaneous
  Country: DE (occurrence: DE)
  Receive Date: 20180419
  Receipt Date: 20180419
  Transmission Date: 20180711
  Serious: Yes (Life-Threatening, Hospitalization, Other)
  Sender: FDA-Public Use
  Company Number: PHHY2016DE161732

PATIENT
  Age: 78 Year
  Sex: Female

DRUGS (8)
  1. PIPAMPERONE [Suspect]
     Active Substance: PIPAMPERONE
     Dosage: 80 MG, BID
     Route: 065
  2. MEMANTINE. [Concomitant]
     Active Substance: MEMANTINE
     Indication: DEMENTIA ALZHEIMER^S TYPE
  3. PIPAMPERONE [Suspect]
     Active Substance: PIPAMPERONE
     Indication: AGITATION
     Dosage: 160 MG, QD
     Route: 065
  4. PIPAMPERONE [Suspect]
     Active Substance: PIPAMPERONE
     Dosage: 40 MG, BID
     Route: 065
  5. ZOPICLONE [Interacting]
     Active Substance: ZOPICLONE
     Indication: AGITATION
     Dosage: 7.5 MG, QD
     Route: 065
  6. METHOTREXATE. [Suspect]
     Active Substance: METHOTREXATE
     Indication: RHEUMATOID ARTHRITIS
     Dosage: 5 MG, QW
     Route: 065
  7. MEMANTINE. [Concomitant]
     Active Substance: MEMANTINE
     Indication: PRODUCT USED FOR UNKNOWN INDICATION
  8. MEMANTINE. [Concomitant]
     Active Substance: MEMANTINE
     Indication: AGITATION
     Dosage: 5 MG, QD
     Route: 065

REACTIONS (2)
  - Hypothermia [Recovered/Resolved]
  - Drug interaction [Unknown]
